FAERS Safety Report 8053830-1 (Version None)
Quarter: 2012Q1

REPORT INFORMATION
  Report Type: 
  Country: None (occurrence: None)
  Receive Date: 20120118
  Receipt Date: 20120112
  Transmission Date: 20120608
  Serious: Yes (Hospitalization)
  Sender: FDA-Public Use
  Company Number: DK-PFIZER INC-2011306130

PATIENT
  Age: 22 Year
  Sex: Female
  Weight: 60 kg

DRUGS (3)
  1. PROVERA [Suspect]
     Indication: ENDOMETRIOSIS
     Dosage: 5 MG, 3X/DAY
     Route: 048
     Dates: start: 20110926, end: 20111026
  2. IBUPROFEN [Concomitant]
  3. PAMOL [Concomitant]

REACTIONS (2)
  - PELVIC VENOUS THROMBOSIS [None]
  - THROMBOSIS [None]
